FAERS Safety Report 8221707-4 (Version None)
Quarter: 2012Q1

REPORT INFORMATION
  Report Type: 
  Country: None (occurrence: None)
  Receive Date: 20120320
  Receipt Date: 20120315
  Transmission Date: 20120608
  Serious: No
  Sender: FDA-Public Use
  Company Number: US-PFIZER INC-2012068945

PATIENT
  Sex: Male
  Weight: 92.97 kg

DRUGS (3)
  1. LIPITOR [Suspect]
     Indication: BLOOD CHOLESTEROL INCREASED
     Dosage: 20 MG, 1X/DAY
     Route: 048
  2. CETIRIZINE [Concomitant]
     Indication: HYPERSENSITIVITY
     Dosage: UNK, 1X/DAY
  3. ENALAPRIL [Concomitant]
     Indication: HYPERTENSION
     Dosage: UNK

REACTIONS (2)
  - MUSCLE SPASMS [None]
  - MYALGIA [None]
